FAERS Safety Report 9252572 (Version 2)
Quarter: 2013Q2

REPORT INFORMATION
  Report Type: Spontaneous
  Country: US (occurrence: US)
  Receive Date: 20130424
  Receipt Date: 20130509
  Transmission Date: 20140414
  Serious: No
  Sender: FDA-Public Use
  Company Number: US-ASTRAZENECA-2013SE23812

PATIENT
  Age: 54 Year
  Sex: Female
  Weight: 65.8 kg

DRUGS (3)
  1. NEXIUM [Suspect]
     Indication: GASTROOESOPHAGEAL REFLUX DISEASE
     Route: 048
     Dates: start: 201204
  2. NEXIUM [Suspect]
     Indication: OESOPHAGEAL DISORDER
     Route: 048
     Dates: start: 201204
  3. PREVACID [Suspect]
     Indication: GASTROOESOPHAGEAL REFLUX DISEASE
     Route: 065

REACTIONS (3)
  - Nausea [Unknown]
  - Abdominal discomfort [Unknown]
  - Intentional drug misuse [Unknown]
